FAERS Safety Report 19106187 (Version 1)
Quarter: 2021Q2

REPORT INFORMATION
  Report Type: Spontaneous
  Country: GE (occurrence: GE)
  Receive Date: 20210408
  Receipt Date: 20210408
  Transmission Date: 20210717
  Serious: Yes (Other)
  Sender: FDA-Public Use
  Company Number: GE-SUN PHARMACEUTICAL INDUSTRIES LTD-2021RR-290273

PATIENT
  Age: 59 Year
  Sex: Female

DRUGS (3)
  1. GEMCITABINE. [Suspect]
     Active Substance: GEMCITABINE
     Indication: LEIOMYOSARCOMA
     Dosage: UNK, 11 CYCLES
     Route: 065
  2. TEMOZOLOMIDE. [Suspect]
     Active Substance: TEMOZOLOMIDE
     Indication: LEIOMYOSARCOMA
     Dosage: UNK, 5 DAYS MONTHLY
     Route: 065
  3. DOCETAXEL. [Suspect]
     Active Substance: DOCETAXEL
     Indication: LEIOMYOSARCOMA
     Dosage: UNK, 11 CYCLES
     Route: 065

REACTIONS (2)
  - Disease progression [Unknown]
  - Neutropenia [Unknown]
